FAERS Safety Report 14491803 (Version 11)
Quarter: 2018Q2

REPORT INFORMATION
  Report Type: Spontaneous
  Country: JP (occurrence: JP)
  Receive Date: 20180206
  Receipt Date: 20180418
  Transmission Date: 20180711
  Serious: Yes (Other)
  Sender: FDA-Public Use
  Company Number: PHJP2017JP009846

PATIENT
  Age: 73 Year
  Sex: Male

DRUGS (23)
  1. TEGRETOL [Suspect]
     Active Substance: CARBAMAZEPINE
     Indication: AGITATION
     Dosage: 3 DF, QD (2 TABLETS IN THE EARLY EVENING AND 1 TABLET AT BEDTIME)
     Route: 048
  2. GOODMIN [Suspect]
     Active Substance: BROTIZOLAM
     Dosage: 1 DF, UNK
     Route: 048
  3. DEPAS [Suspect]
     Active Substance: ETIZOLAM
     Dosage: 2 DF, QD
     Route: 048
  4. TEGRETOL [Suspect]
     Active Substance: CARBAMAZEPINE
     Dosage: 3 DF, QD
     Route: 048
  5. LEXAPRO [Suspect]
     Active Substance: ESCITALOPRAM OXALATE
     Indication: DEPRESSION
     Dosage: 5 MG, QD
     Route: 048
  6. DEPAS [Suspect]
     Active Substance: ETIZOLAM
     Indication: SLEEP DISORDER
     Dosage: 1.5 MG, QD (IN 3 DIVIDED DOSES)
     Route: 048
  7. DEPAS [Suspect]
     Active Substance: ETIZOLAM
     Dosage: 2 MG, UNK
     Route: 048
  8. VALPROATE SODIUM. [Concomitant]
     Active Substance: VALPROATE SODIUM
     Indication: PRODUCT USED FOR UNKNOWN INDICATION
     Dosage: 200 MG, UNK
     Route: 065
  9. TEGRETOL [Suspect]
     Active Substance: CARBAMAZEPINE
     Indication: MANIA
     Dosage: 1 DF, QD
     Route: 048
  10. TEGRETOL [Suspect]
     Active Substance: CARBAMAZEPINE
     Dosage: 600 MG, QD
     Route: 048
  11. GOODMIN [Suspect]
     Active Substance: BROTIZOLAM
     Indication: INITIAL INSOMNIA
     Dosage: 0.25 MG, QD
     Route: 048
  12. DEPAS [Suspect]
     Active Substance: ETIZOLAM
     Indication: INITIAL INSOMNIA
     Dosage: 6 MG, UNK
     Route: 048
  13. TERNELIN [Suspect]
     Active Substance: TIZANIDINE
     Indication: MUSCULOSKELETAL STIFFNESS
     Route: 048
  14. TEGRETOL [Suspect]
     Active Substance: CARBAMAZEPINE
     Indication: BIPOLAR I DISORDER
     Dosage: 200 MG, QD
     Route: 048
  15. LEXAPRO [Suspect]
     Active Substance: ESCITALOPRAM OXALATE
     Indication: ANXIETY DISORDER
     Dosage: 20 MG, QD
     Route: 048
  16. LEXAPRO [Suspect]
     Active Substance: ESCITALOPRAM OXALATE
     Dosage: 10 MG, QD
     Route: 048
  17. GOODMIN [Suspect]
     Active Substance: BROTIZOLAM
     Indication: SLEEP DISORDER
     Dosage: UNK, QHS (BEFORE BEDTIME)
     Route: 048
  18. LEXAPRO [Suspect]
     Active Substance: ESCITALOPRAM OXALATE
     Dosage: 10 MG, UNK
     Route: 048
  19. DEPAS [Suspect]
     Active Substance: ETIZOLAM
     Dosage: 2 MG, UNK
     Route: 048
  20. TEGRETOL [Suspect]
     Active Substance: CARBAMAZEPINE
     Dosage: 400 MG, QD
     Route: 048
  21. TEGRETOL [Suspect]
     Active Substance: CARBAMAZEPINE
     Dosage: 600 MG, BID
     Route: 048
  22. TEGRETOL [Suspect]
     Active Substance: CARBAMAZEPINE
     Dosage: 600 MG, UNK
     Route: 048
  23. LEXAPRO [Suspect]
     Active Substance: ESCITALOPRAM OXALATE
     Indication: BIPOLAR I DISORDER
     Dosage: 10 MG, QD
     Route: 048

REACTIONS (24)
  - Nausea [Unknown]
  - Anxiety [Unknown]
  - Dizziness [Unknown]
  - Muscle twitching [Unknown]
  - Hyperventilation [Unknown]
  - Mental disorder [Unknown]
  - Phobia of driving [Unknown]
  - Pollakiuria [Unknown]
  - Suicidal ideation [Unknown]
  - Malaise [Unknown]
  - Heart rate increased [Unknown]
  - Initial insomnia [Unknown]
  - Gait inability [Recovering/Resolving]
  - Asthenia [Unknown]
  - Gastrooesophageal reflux disease [Unknown]
  - Pain of skin [Unknown]
  - Depression [Unknown]
  - Somnolence [Unknown]
  - Sedation [Unknown]
  - Restlessness [Unknown]
  - Dyspepsia [Unknown]
  - Feeling abnormal [Recovering/Resolving]
  - Mania [Unknown]
  - Agitation [Unknown]
